FAERS Safety Report 6382475-4 (Version None)
Quarter: 2009Q3

REPORT INFORMATION
  Report Type: 
  Country: None (occurrence: None)
  Receive Date: 20090924
  Receipt Date: 20081025
  Transmission Date: 20100115
  Serious: Yes (Disabling, Other)
  Sender: FDA-Public Use
  Company Number: WAES 0810USA04756

PATIENT
  Age: 31 Year
  Sex: Male
  Weight: 81.6475 kg

DRUGS (1)
  1. VYTORIN [Suspect]
     Indication: BLOOD CHOLESTEROL INCREASED
     Dosage: 10/20 MG/DAILY/PO
     Route: 048
     Dates: start: 20080725

REACTIONS (5)
  - ASTHENIA [None]
  - BLOOD CREATINE PHOSPHOKINASE INCREASED [None]
  - INFLUENZA [None]
  - MYALGIA [None]
  - PYREXIA [None]
